FAERS Safety Report 4848682-4 (Version None)
Quarter: 2005Q4

REPORT INFORMATION
  Report Type: 
  Country: None (occurrence: None)
  Receive Date: 20051206
  Receipt Date: 20051124
  Transmission Date: 20060501
  Serious: Yes (Other)
  Sender: FDA-Public Use
  Company Number: GBS050818143

PATIENT
  Age: 10 Year
  Sex: Male
  Weight: 29.5 kg

DRUGS (2)
  1. STRATTERA [Suspect]
     Indication: ATTENTION DEFICIT/HYPERACTIVITY DISORDER
     Dosage: 25 MG, DAILY (1/D), ORAL
     Route: 048
     Dates: start: 20050623, end: 20050809
  2. CONCERTA [Concomitant]

REACTIONS (8)
  - BLOOD PRESSURE DIASTOLIC DECREASED [None]
  - FALL [None]
  - FEELING HOT [None]
  - HYPERHIDROSIS [None]
  - MALAISE [None]
  - NAUSEA [None]
  - PALLOR [None]
  - SYNCOPE [None]
